FAERS Safety Report 4352897-1 (Version None)
Quarter: 2004Q2

REPORT INFORMATION
  Report Type: 
  Country: None (occurrence: None)
  Receive Date: 20040428
  Receipt Date: 20040407
  Transmission Date: 20050107
  Serious: Yes (Life-Threatening, Other)
  Sender: FDA-Public Use
  Company Number: WAES 0404USA01160

PATIENT
  Age: 9 Month
  Sex: Male

DRUGS (13)
  1. COSMEGEN [Suspect]
     Indication: RHABDOMYOSARCOMA
     Dosage: 0.12 MG /DAILY
     Route: 042
     Dates: start: 20021111, end: 20021115
  2. LACTOMIN [Concomitant]
  3. ALBUMIN TANNATE [Concomitant]
  4. ALUMINIUM SILICATE [Concomitant]
  5. BLOOD CELLS, RED [Concomitant]
  6. PLASMA [Concomitant]
  7. CARBOCYSTEINE [Concomitant]
  8. CROMOLYN SODIUM [Concomitant]
  9. CYCLOPHOSPHAMIDE [Concomitant]
  10. CYPROHEPTADINE HYDROCHLORIDE [Concomitant]
  11. OXATOMIDE [Concomitant]
  12. SULFAMETHOXAZOLE + TRIMETHOPRIM [Concomitant]
  13. VINCRISTRINE SULFATE [Concomitant]

REACTIONS (8)
  - ALANINE AMINOTRANSFERASE INCREASED [None]
  - ASPARTATE AMINOTRANSFERASE INCREASED [None]
  - BODY TEMPERATURE INCREASED [None]
  - BONE MARROW DEPRESSION [None]
  - DISSEMINATED INTRAVASCULAR COAGULATION [None]
  - DRUG EFFECT DECREASED [None]
  - HEPATIC FUNCTION ABNORMAL [None]
  - VENOOCCLUSIVE DISEASE [None]
